FAERS Safety Report 5867692-1 (Version None)
Quarter: 2008Q3

REPORT INFORMATION
  Report Type: 
  Country: None (occurrence: None)
  Receive Date: 20080902
  Receipt Date: 20071204
  Transmission Date: 20090109
  Serious: No
  Sender: FDA-Public Use
  Company Number: US-ABBOTT-07P-163-0427652-00

PATIENT
  Sex: Female
  Weight: 77.18 kg

DRUGS (3)
  1. DEPAKOTE ER [Suspect]
     Indication: BIPOLAR DISORDER
     Route: 048
     Dates: start: 20071124, end: 20071205
  2. DEPAKOTE ER [Suspect]
     Indication: MIGRAINE
     Route: 048
     Dates: start: 20071121, end: 20071124
  3. DEPAKOTE ER [Suspect]
     Route: 048
     Dates: start: 20071205

REACTIONS (1)
  - ALOPECIA [None]
